FAERS Safety Report 14892125 (Version 1)
Quarter: 2018Q2

REPORT INFORMATION
  Report Type: Spontaneous
  Country: US (occurrence: US)
  Receive Date: 20180514
  Receipt Date: 20180514
  Transmission Date: 20180711
  Serious: No
  Sender: FDA-Public Use
  Company Number: US-BAYER-2018-087440

PATIENT
  Age: 33 Year
  Sex: Female

DRUGS (1)
  1. FINACEA [Suspect]
     Active Substance: AZELAIC ACID
     Dosage: UNK

REACTIONS (4)
  - Burning sensation [None]
  - Erythema [None]
  - Pruritus [None]
  - Dry skin [None]

NARRATIVE: CASE EVENT DATE: 20180312
